FAERS Safety Report 23454870 (Version 1)
Quarter: 2024Q1

REPORT INFORMATION
  Report Type: Spontaneous
  Country: US (occurrence: US)
  Receive Date: 20240130
  Receipt Date: 20240130
  Transmission Date: 20240410
  Serious: No
  Sender: FDA-Public Use
  Company Number: US-AZURITY PHARMACEUTICALS, INC.-US-2024ARB000023

PATIENT
  Age: 3 Year
  Sex: Male

DRUGS (14)
  1. METHYLPREDNISOLONE ACETATE [Suspect]
     Active Substance: METHYLPREDNISOLONE ACETATE
     Indication: Autoinflammatory disease
     Dosage: 10 MG/KG, BIW
     Route: 065
     Dates: start: 2023
  2. METHYLPREDNISOLONE ACETATE [Suspect]
     Active Substance: METHYLPREDNISOLONE ACETATE
     Indication: Haemophagocytic lymphohistiocytosis
  3. ANAKINRA [Concomitant]
     Active Substance: ANAKINRA
     Indication: Autoinflammatory disease
     Dosage: UNK
     Dates: start: 2023
  4. ANAKINRA [Concomitant]
     Active Substance: ANAKINRA
     Indication: Haemophagocytic lymphohistiocytosis
  5. TOFACITINIB [Concomitant]
     Active Substance: TOFACITINIB
     Indication: Autoinflammatory disease
     Dosage: UNK
     Dates: start: 2023
  6. TOFACITINIB [Concomitant]
     Active Substance: TOFACITINIB
     Indication: Haemophagocytic lymphohistiocytosis
  7. BARICITINIB [Concomitant]
     Active Substance: BARICITINIB
     Indication: Autoinflammatory disease
     Dosage: UNK
     Dates: start: 2023
  8. BARICITINIB [Concomitant]
     Active Substance: BARICITINIB
     Indication: Haemophagocytic lymphohistiocytosis
  9. CYCLOSPORINE [Concomitant]
     Active Substance: CYCLOSPORINE
     Indication: Autoinflammatory disease
     Dosage: UNK
     Dates: start: 2023
  10. CYCLOSPORINE [Concomitant]
     Active Substance: CYCLOSPORINE
     Indication: Haemophagocytic lymphohistiocytosis
  11. EMAPALUMAB [Concomitant]
     Active Substance: EMAPALUMAB
     Indication: Autoinflammatory disease
     Dosage: UNK
     Dates: start: 2023
  12. EMAPALUMAB [Concomitant]
     Active Substance: EMAPALUMAB
     Indication: Haemophagocytic lymphohistiocytosis
  13. XELJANZ [Concomitant]
     Active Substance: TOFACITINIB CITRATE
     Indication: Autoinflammatory disease
     Dosage: UNK
     Dates: start: 2023
  14. XELJANZ [Concomitant]
     Active Substance: TOFACITINIB CITRATE
     Indication: Haemophagocytic lymphohistiocytosis

REACTIONS (2)
  - Treatment failure [Unknown]
  - Product use in unapproved indication [Unknown]

NARRATIVE: CASE EVENT DATE: 20230101
